FAERS Safety Report 13979182 (Version 2)
Quarter: 2018Q3

REPORT INFORMATION
  Report Type: Spontaneous
  Country: US (occurrence: US)
  Receive Date: 20170914
  Receipt Date: 20180913
  Transmission Date: 20181010
  Serious: No
  Sender: FDA-Public Use
  Company Number: US-ASTELLAS-2017US009177

PATIENT
  Sex: Male

DRUGS (1)
  1. XTANDI [Suspect]
     Active Substance: ENZALUTAMIDE
     Indication: PROSTATE CANCER
     Route: 048
     Dates: start: 20170112

REACTIONS (9)
  - Epistaxis [Recovered/Resolved]
  - Blood pressure increased [Unknown]
  - Dizziness [Recovering/Resolving]
  - Sleep terror [Unknown]
  - Insomnia [Not Recovered/Not Resolved]
  - Headache [Unknown]
  - Nightmare [Unknown]
  - Hypertension [Not Recovered/Not Resolved]
  - Nausea [Unknown]
